FAERS Safety Report 15400204 (Version 1)
Quarter: 2018Q3

REPORT INFORMATION
  Report Type: Spontaneous
  Country: US (occurrence: US)
  Receive Date: 20180919
  Receipt Date: 20180919
  Transmission Date: 20181010
  Serious: No
  Sender: FDA-Public Use
  Company Number: US-BION-006737

PATIENT
  Age: 55 Year
  Sex: Male
  Weight: 65.32 kg

DRUGS (2)
  1. ZYRTEC [Suspect]
     Active Substance: CETIRIZINE HYDROCHLORIDE
     Indication: HYPERSENSITIVITY
     Route: 048
     Dates: start: 20170929, end: 20171009
  2. MOTRIN [Concomitant]
     Active Substance: IBUPROFEN
     Indication: HEADACHE
     Dosage: STRENGTH: 800 MG??3 PER DAY AS NEEDED

REACTIONS (2)
  - Incorrect drug administration duration [Not Recovered/Not Resolved]
  - Drug ineffective [Not Recovered/Not Resolved]
